FAERS Safety Report 9764518 (Version 1)
Quarter: 2013Q4

REPORT INFORMATION
  Report Type: Report from Study
  Country: US (occurrence: US)
  Receive Date: 20131217
  Receipt Date: 20131217
  Transmission Date: 20140711
  Serious: Yes (Hospitalization)
  Sender: FDA-Public Use
  Company Number: US-ROCHE-1317862

PATIENT
  Sex: Female

DRUGS (10)
  1. PULMOZYME [Suspect]
     Indication: CYSTIC FIBROSIS
     Dosage: MOST RECENT DOSE ON 09/DEC/2013.
     Route: 065
  2. BENADRYL (UNITED STATES) [Concomitant]
     Dosage: (INTENDED TO START WHEN CIPRO STARTED TODAY)
     Route: 065
     Dates: start: 20131210
  3. CREON 24 [Concomitant]
     Dosage: TAKE 2 TWICE A DAY WITH MEALS (6 TOTAL A DAY)
     Route: 065
  4. URSODIOL [Concomitant]
     Dosage: ^2 A DAY^
     Route: 065
  5. AZITHROMYCIN [Concomitant]
     Dosage: 3 TIMES A WEEK: MONDAYS, WEDNESDAYS, FRIDAYS
     Route: 065
  6. INSULIN [Concomitant]
     Dosage: 11 UNITS AT NIGHT
     Route: 065
  7. NOVOLOG [Concomitant]
     Dosage: ^1-2-3 UNITS^
     Route: 065
  8. ALBUTEROL [Concomitant]
     Dosage: ^2 PUFFS 2-4 HOURS WHEN NEEDED^
     Route: 065
  9. SYMBICORT [Concomitant]
     Dosage: ^A PUFF AT NIGHT AND A PUFF IN THE MORNING^
     Route: 065
  10. LANTUS [Concomitant]

REACTIONS (14)
  - Bronchitis [Unknown]
  - Bacterial infection [Unknown]
  - Haemoptysis [Unknown]
  - Vomiting [Unknown]
  - Lung infection [Unknown]
  - Burkholderia cepacia complex infection [Unknown]
  - Dehydration [Unknown]
  - Diabetic cystopathy [Unknown]
  - Blood glucose abnormal [Unknown]
  - Fatigue [Unknown]
  - Malaise [Unknown]
  - Cough [Unknown]
  - Dysphonia [Recovered/Resolved]
  - Oropharyngeal pain [Recovered/Resolved]
